FAERS Safety Report 4985663-4 (Version None)
Quarter: 2006Q2

REPORT INFORMATION
  Report Type: 
  Country: None (occurrence: None)
  Receive Date: 20060428
  Receipt Date: 20050616
  Transmission Date: 20061013
  Serious: No
  Sender: FDA-Public Use
  Company Number: US-GLAXOSMITHKLINE-A0563051A

PATIENT
  Age: 58 Year
  Sex: Female
  Weight: 115.5 kg

DRUGS (2)
  1. ZOFRAN [Suspect]
     Indication: PROPHYLAXIS
     Route: 042
     Dates: start: 20050101
  2. KYTRIL [Suspect]
     Indication: DRUG USE FOR UNKNOWN INDICATION
     Route: 042

REACTIONS (1)
  - MIGRAINE [None]
